FAERS Safety Report 7309488-X (Version None)
Quarter: 2011Q1

REPORT INFORMATION
  Report Type: 
  Country: None (occurrence: None)
  Receive Date: 20110223
  Receipt Date: 20110214
  Transmission Date: 20110831
  Serious: Yes (Other)
  Sender: FDA-Public Use
  Company Number: GB-ASTRAZENECA-2011SE08754

PATIENT
  Sex: Male

DRUGS (2)
  1. ZOLADEX [Suspect]
     Route: 058
     Dates: start: 20101109
  2. ZOLADEX [Suspect]
     Indication: PROSTATE CANCER
     Dosage: 3.6 MG, EVERY 28 DAYS
     Route: 058

REACTIONS (3)
  - CARDIAC PACEMAKER INSERTION [None]
  - BRADYCARDIA [None]
  - AMNESIA [None]
